FAERS Safety Report 7637301-X (Version None)
Quarter: 2011Q3

REPORT INFORMATION
  Report Type: 
  Country: None (occurrence: None)
  Receive Date: 20110726
  Receipt Date: 20110713
  Transmission Date: 20111222
  Serious: Yes (Hospitalization)
  Sender: FDA-Public Use
  Company Number: US-ELI_LILLY_AND_COMPANY-US201001000655

PATIENT
  Sex: Female

DRUGS (2)
  1. FORTEO [Suspect]
     Dosage: 20 UG, QD
     Route: 058
  2. FORTEO [Suspect]
     Dosage: 20 UG, QD
     Route: 058
     Dates: start: 20090616

REACTIONS (7)
  - CARDIAC OPERATION [None]
  - HEART RATE DECREASED [None]
  - ADVERSE DRUG REACTION [None]
  - VASCULAR INJURY [None]
  - HEART RATE IRREGULAR [None]
  - INJECTION SITE HAEMATOMA [None]
  - INJECTION SITE PAIN [None]
